FAERS Safety Report 24343823 (Version 1)
Quarter: 2024Q3

REPORT INFORMATION
  Report Type: Spontaneous
  Country: MX (occurrence: MX)
  Receive Date: 20240920
  Receipt Date: 20240920
  Transmission Date: 20241017
  Serious: Yes (Other)
  Sender: RANBAXY
  Company Number: MX-SUN PHARMACEUTICAL INDUSTRIES LTD-2024R1-469004

PATIENT
  Age: 8 Year
  Sex: Male

DRUGS (2)
  1. FUROSEMIDE [Suspect]
     Active Substance: FUROSEMIDE
     Indication: Heart disease congenital
     Dosage: 0.5 MILLIGRAM/KILOGRAM, BID
     Route: 065
  2. SPIRONOLACTONE [Suspect]
     Active Substance: SPIRONOLACTONE
     Indication: Heart disease congenital
     Dosage: 0.5 MILLIGRAM/KILOGRAM, BID
     Route: 065

REACTIONS (1)
  - Attention deficit hyperactivity disorder [Unknown]
